FAERS Safety Report 6508341-9 (Version None)
Quarter: 2009Q4

REPORT INFORMATION
  Report Type: 
  Country: None (occurrence: None)
  Receive Date: 20091221
  Receipt Date: 20081105
  Transmission Date: 20100525
  Serious: No
  Sender: FDA-Public Use
  Company Number: US-ASTRAZENECA-2008UW14673

PATIENT
  Age: 63 Year
  Sex: Female

DRUGS (6)
  1. CRESTOR [Suspect]
     Dosage: 10 MG
     Route: 048
     Dates: start: 20070101
  2. CRESTOR [Interacting]
     Dosage: 20 MG
     Route: 048
  3. CALCIUM [Interacting]
  4. METOPROLOL TARTRATE [Concomitant]
  5. ASPIRIN [Concomitant]
     Dosage: 81 MG
  6. PLAVIX [Concomitant]

REACTIONS (3)
  - BLOOD CHOLESTEROL INCREASED [None]
  - DRUG INEFFECTIVE [None]
  - DRUG INTERACTION [None]
